FAERS Safety Report 20190990 (Version 1)
Quarter: 2021Q4

REPORT INFORMATION
  Report Type: Other
  Country: CA (occurrence: CA)
  Receive Date: 20211216
  Receipt Date: 20211216
  Transmission Date: 20220303
  Serious: No
  Sender: FDA-Public Use
  Company Number: CA-TOLMAR, INC.-21CA030426

PATIENT
  Age: 73 Year
  Sex: Male

DRUGS (4)
  1. ELIGARD [Suspect]
     Active Substance: LEUPROLIDE ACETATE
     Indication: Prostate cancer
     Dosage: 30 MILLIGRAM, Q 4 MONTH
     Route: 058
     Dates: start: 20210917
  2. RADIATION THERAPY [Concomitant]
     Active Substance: RADIATION THERAPY
     Indication: Product used for unknown indication
     Dosage: UNK
  3. LASIX [Concomitant]
     Active Substance: FUROSEMIDE
     Indication: Peripheral vascular disorder
  4. COUMADIN [Concomitant]
     Active Substance: WARFARIN SODIUM
     Indication: Cerebrovascular accident

REACTIONS (6)
  - Headache [Unknown]
  - Joint swelling [Unknown]
  - Injection site pain [Recovered/Resolved]
  - Fatigue [Unknown]
  - Dizziness [Unknown]
  - Depressed mood [Unknown]

NARRATIVE: CASE EVENT DATE: 20210917
